FAERS Safety Report 7745216-1 (Version None)
Quarter: 2011Q3

REPORT INFORMATION
  Report Type: 
  Country: None (occurrence: None)
  Receive Date: 20110913
  Receipt Date: 20110903
  Transmission Date: 20111222
  Serious: Yes (Other)
  Sender: FDA-Public Use
  Company Number: DE-PAR PHARMACEUTICAL, INC-2011SCPR003224

PATIENT

DRUGS (3)
  1. DEXAMETHASONE [Suspect]
     Indication: MEDULLOBLASTOMA
     Dosage: UNK, UNKNOWN
     Route: 065
  2. TEMOZOLOMIDE [Suspect]
     Indication: MEDULLOBLASTOMA
     Dosage: 150 MG/M2/DAY ON 1-5 OF A 28-DAY CYCLE
     Route: 065
  3. ETOPOSIDE [Concomitant]
     Indication: MEDULLOBLASTOMA RECURRENT
     Dosage: UNK, UNKNOWN
     Route: 065

REACTIONS (4)
  - PNEUMONIA STAPHYLOCOCCAL [None]
  - PNEUMOCYSTIS JIROVECI PNEUMONIA [None]
  - ACUTE RESPIRATORY DISTRESS SYNDROME [None]
  - ASPERGILLOSIS [None]
